FAERS Safety Report 13126679 (Version 2)
Quarter: 2017Q1

REPORT INFORMATION
  Report Type: Report from Study
  Country: None (occurrence: BR)
  Receive Date: 20170118
  Receipt Date: 20170131
  Transmission Date: 20170428
  Serious: Yes (Other)
  Sender: FDA-Public Use
  Company Number: BR-ABBVIE-17P-020-1842934-00

PATIENT
  Age: 63 Year
  Sex: Female
  Weight: 68 kg

DRUGS (2)
  1. CAPTOPRIL. [Suspect]
     Active Substance: CAPTOPRIL
     Indication: HYPERTENSION
     Route: 065
     Dates: start: 2006
  2. SYNTHROID [Suspect]
     Active Substance: LEVOTHYROXINE SODIUM
     Indication: HYPOTHYROIDISM
     Dosage: UNIT DOSE: ^1^; EARLY IN THE MORNING
     Route: 048

REACTIONS (23)
  - Food allergy [Recovered/Resolved]
  - Burning sensation [Recovered/Resolved]
  - Emotional disorder [Unknown]
  - Drug hypersensitivity [Recovered/Resolved]
  - Uterine haemorrhage [Recovered/Resolved]
  - Feeling abnormal [Recovered/Resolved]
  - Malaise [Unknown]
  - Mass [Recovered/Resolved]
  - Burning sensation [Unknown]
  - Colon cancer [Recovered/Resolved]
  - Pain [Recovered/Resolved]
  - Mass [Unknown]
  - Chest pain [Recovered/Resolved]
  - Erythema [Unknown]
  - Drug hypersensitivity [Recovered/Resolved]
  - Erythema [Recovered/Resolved]
  - Bedridden [Recovered/Resolved]
  - Arthralgia [Recovered/Resolved]
  - Anaemia [Recovered/Resolved]
  - Hypertension [Recovered/Resolved]
  - Pain [Unknown]
  - Menorrhagia [Recovered/Resolved]
  - Dyspnoea [Recovered/Resolved]

NARRATIVE: CASE EVENT DATE: 2006
